FAERS Safety Report 7470146-2 (Version None)
Quarter: 2011Q2

REPORT INFORMATION
  Report Type: 
  Country: None (occurrence: None)
  Receive Date: 20110510
  Receipt Date: 20110509
  Transmission Date: 20111010
  Serious: Yes (Other)
  Sender: FDA-Public Use
  Company Number: A0926653A

PATIENT
  Age: 87 Year
  Sex: Female

DRUGS (1)
  1. PROMACTA [Suspect]
     Route: 048

REACTIONS (11)
  - PRURITUS [None]
  - SKIN DISORDER [None]
  - DRY SKIN [None]
  - CONDITION AGGRAVATED [None]
  - MUSCULOSKELETAL STIFFNESS [None]
  - SCAB [None]
  - PARAESTHESIA [None]
  - SKIN BURNING SENSATION [None]
  - SKIN IRRITATION [None]
  - SKIN ATROPHY [None]
  - ERYTHEMA [None]
